FAERS Safety Report 14380230 (Version 1)
Quarter: 2018Q1

REPORT INFORMATION
  Report Type: Spontaneous
  Country: US (occurrence: US)
  Receive Date: 20180112
  Receipt Date: 20180112
  Transmission Date: 20180509
  Serious: Yes (Other)
  Sender: FDA-Public Use
  Company Number: US-ELI_LILLY_AND_COMPANY-US201801001480

PATIENT
  Age: 72 Year
  Sex: Female

DRUGS (2)
  1. FORTEO [Suspect]
     Active Substance: TERIPARATIDE
     Indication: OSTEOPOROSIS
     Dosage: UNK, UNKNOWN
     Route: 065
     Dates: start: 201708
  2. FORTEO [Suspect]
     Active Substance: TERIPARATIDE
     Dosage: UNK, UNKNOWN
     Route: 065
     Dates: end: 20180102

REACTIONS (23)
  - Tongue biting [Recovering/Resolving]
  - Nasal congestion [Recovering/Resolving]
  - Pharyngeal mass [Recovering/Resolving]
  - Swelling face [Recovering/Resolving]
  - Depression suicidal [Recovering/Resolving]
  - Swelling [Recovering/Resolving]
  - Confusional state [Recovered/Resolved]
  - Vision blurred [Recovering/Resolving]
  - Feeding disorder [Recovering/Resolving]
  - Mobility decreased [Recovering/Resolving]
  - Tongue movement disturbance [Unknown]
  - Spinal fracture [Unknown]
  - Hypersensitivity [Recovering/Resolving]
  - Musculoskeletal stiffness [Recovering/Resolving]
  - Diabetes mellitus [Unknown]
  - Lymphadenopathy [Recovering/Resolving]
  - Secretion discharge [Recovering/Resolving]
  - Neck pain [Recovering/Resolving]
  - Swollen tongue [Recovering/Resolving]
  - Palpitations [Unknown]
  - Blindness [Recovering/Resolving]
  - Speech disorder [Recovering/Resolving]
  - Dysphagia [Recovering/Resolving]

NARRATIVE: CASE EVENT DATE: 2017
